FAERS Safety Report 4269458-5 (Version None)
Quarter: 2004Q1

REPORT INFORMATION
  Report Type: 
  Country: None (occurrence: None)
  Receive Date: 20040113
  Receipt Date: 20031014
  Transmission Date: 20041129
  Serious: Yes (Other)
  Sender: FDA-Public Use
  Company Number: US-ROCHE-349294

PATIENT
  Age: 43 Year
  Sex: Female
  Weight: 111.6 kg

DRUGS (4)
  1. PEGASYS [Suspect]
     Route: 058
     Dates: start: 20030215, end: 20030715
  2. PEGASYS [Suspect]
     Route: 058
     Dates: start: 20030715, end: 20030815
  3. COPEGUS [Suspect]
     Indication: DRUG USE FOR UNKNOWN INDICATION
     Route: 065
     Dates: start: 20030715, end: 20030815
  4. COPEGUS [Suspect]
     Route: 065

REACTIONS (1)
  - HYPOAESTHESIA [None]
